FAERS Safety Report 9572890 (Version 1)
Quarter: 2013Q4

REPORT INFORMATION
  Report Type: Spontaneous
  Country: US (occurrence: US)
  Receive Date: 20131001
  Receipt Date: 20131001
  Transmission Date: 20140711
  Serious: No
  Sender: FDA-Public Use
  Company Number: US-BIOGENIDEC-2013BI068461

PATIENT
  Age: 48 Year
  Sex: Female
  Weight: 56 kg

DRUGS (6)
  1. TECFIDERA [Suspect]
     Indication: MULTIPLE SCLEROSIS
     Route: 048
     Dates: start: 20130629
  2. TECFIDERA [Suspect]
     Indication: MULTIPLE SCLEROSIS
     Route: 048
     Dates: start: 20130706
  3. ZANTAC [Concomitant]
  4. IRON TAB [Concomitant]
  5. VITAMIN D [Concomitant]
  6. VESICARE [Concomitant]

REACTIONS (4)
  - Pruritus [Unknown]
  - Hot flush [Unknown]
  - Hyperhidrosis [Unknown]
  - Confusional state [Unknown]
